FAERS Safety Report 23518707 (Version 2)
Quarter: 2024Q1

REPORT INFORMATION
  Report Type: Report from Study
  Country: PR (occurrence: PR)
  Receive Date: 20240213
  Receipt Date: 20240315
  Transmission Date: 20240410
  Serious: Yes (Other)
  Sender: FDA-Public Use
  Company Number: PR-PFIZER INC-202400012945

PATIENT
  Age: 74 Year
  Sex: Female
  Weight: 78.458 kg

DRUGS (4)
  1. IBRANCE [Suspect]
     Active Substance: PALBOCICLIB
     Indication: Breast cancer metastatic
     Dosage: 125 MG PO (PER ORAL) DAYS 1-21 OF 28 DAYS
     Route: 048
     Dates: start: 20230826
  2. IBRANCE [Suspect]
     Active Substance: PALBOCICLIB
     Dosage: 125MG: 1 TAB DAILY FOR 21 DAYS, REST 7 DAYS
     Route: 048
     Dates: start: 202309, end: 2023
  3. IBRANCE [Suspect]
     Active Substance: PALBOCICLIB
     Dosage: 125 MG, CYCLIC (DAILY X 21 DAYS AND 7 DAYS OFF)
     Route: 048
     Dates: start: 20231208
  4. FULVESTRANT [Concomitant]
     Active Substance: FULVESTRANT
     Dosage: UNK

REACTIONS (4)
  - Pancytopenia [Recovered/Resolved]
  - Skin ulcer [Recovered/Resolved]
  - Limb injury [Recovered/Resolved]
  - Fatigue [Recovered/Resolved]

NARRATIVE: CASE EVENT DATE: 20231201
